FAERS Safety Report 8770788 (Version 1)
Quarter: 2012Q4

REPORT INFORMATION
  Report Type: 
  Country: US (occurrence: US)
  Receive Date: 20120906
  Receipt Date: 20120906
  Transmission Date: 20130627
  Serious: Yes (Hospitalization, Other)
  Sender: FDA-Public Use
  Company Number: US-SANOFI-AVENTIS-2012SA061845

PATIENT
  Sex: Female

DRUGS (3)
  1. LANTUS [Suspect]
     Indication: TYPE II DIABETES MELLITUS
     Route: 058
  2. LANTUS SOLOSTAR [Suspect]
     Indication: TYPE II DIABETES MELLITUS
     Dosage: Dose:43 unit(s)
     Route: 058
  3. SOLOSTAR [Suspect]
     Indication: TYPE II DIABETES MELLITUS

REACTIONS (5)
  - Coronary artery disease [Unknown]
  - Renal disorder [Unknown]
  - Dyspnoea [Unknown]
  - Cardiac pacemaker insertion [Unknown]
  - Implantable defibrillator insertion [Unknown]
